FAERS Safety Report 26130517 (Version 1)
Quarter: 2025Q4

REPORT INFORMATION
  Report Type: Spontaneous
  Country: EU (occurrence: None)
  Receive Date: 20251208
  Receipt Date: 20251208
  Transmission Date: 20260117
  Serious: Yes (Other)
  Sender: UCB
  Company Number: None

PATIENT
  Age: 22 Month

DRUGS (5)
  1. LACOSAMIDE [Suspect]
     Active Substance: LACOSAMIDE
     Indication: Epilepsy
  2. LACOSAMIDE [Suspect]
     Active Substance: LACOSAMIDE
     Indication: Epilepsy
  3. LEVETIRACETAM [Suspect]
     Active Substance: LEVETIRACETAM
     Indication: Epilepsy
  4. SULTHIAME [Suspect]
     Active Substance: SULTHIAME
     Indication: Epilepsy
  5. SULTHIAME [Suspect]
     Active Substance: SULTHIAME
     Indication: Off label use

REACTIONS (4)
  - Epilepsy [Recovered/Resolved]
  - Irritability [Unknown]
  - Off label use [Unknown]
  - Off label use [Unknown]
